FAERS Safety Report 9464561 (Version 2)
Quarter: 2013Q3

REPORT INFORMATION
  Report Type: Spontaneous
  Country: FI (occurrence: FI)
  Receive Date: 20130819
  Receipt Date: 20130918
  Transmission Date: 20140515
  Serious: Yes (Hospitalization)
  Sender: FDA-Public Use
  Company Number: FI-JNJFOC-20130807538

PATIENT
  Age: 45 Year
  Sex: Female

DRUGS (3)
  1. RISPERDAL CONSTA [Suspect]
     Indication: DELUSIONAL DISORDER, UNSPECIFIED TYPE
     Route: 030
     Dates: start: 20120813
  2. RISPERDAL [Suspect]
     Indication: DELUSIONAL DISORDER, UNSPECIFIED TYPE
     Dosage: 1 MG IN MORNING,??1.5 MG IN EVENING
     Route: 048
     Dates: start: 20120813
  3. EMCONCOR [Concomitant]
     Indication: ARRHYTHMIA
     Route: 065

REACTIONS (2)
  - Arrhythmia [Recovered/Resolved]
  - Dehydration [Recovering/Resolving]
